FAERS Safety Report 20796678 (Version 1)
Quarter: 2022Q2

REPORT INFORMATION
  Report Type: Spontaneous
  Country: JP (occurrence: JP)
  Receive Date: 20220506
  Receipt Date: 20220506
  Transmission Date: 20220721
  Serious: Yes (Other)
  Sender: FDA-Public Use
  Company Number: JP-NOVARTISPH-NVSC2022JP030228

PATIENT
  Age: 83 Year
  Sex: Male

DRUGS (1)
  1. PAZOPANIB [Suspect]
     Active Substance: PAZOPANIB
     Indication: Renal cell carcinoma recurrent
     Dosage: UNK
     Route: 065

REACTIONS (9)
  - Hypothyroidism [Unknown]
  - Lymphangiectasia intestinal [Recovering/Resolving]
  - Metastatic renal cell carcinoma [Unknown]
  - Malignant neoplasm progression [Unknown]
  - Palmar-plantar erythrodysaesthesia syndrome [Unknown]
  - Hypertension [Unknown]
  - Therapy partial responder [Unknown]
  - Decreased appetite [Unknown]
  - Diarrhoea [Unknown]
